FAERS Safety Report 7592488-2 (Version None)
Quarter: 2011Q3

REPORT INFORMATION
  Report Type: 
  Country: None (occurrence: None)
  Receive Date: 20110706
  Receipt Date: 20110624
  Transmission Date: 20111222
  Serious: Yes (Death)
  Sender: FDA-Public Use
  Company Number: US-BAYER-2011-055457

PATIENT
  Sex: Male

DRUGS (1)
  1. NEXAVAR [Suspect]
     Indication: NEOPLASM MALIGNANT
     Dosage: UNK
     Route: 048

REACTIONS (1)
  - DEATH [None]
